FAERS Safety Report 10748465 (Version 1)
Quarter: 2015Q1

REPORT INFORMATION
  Report Type: Spontaneous
  Country: US (occurrence: None)
  Receive Date: 20150128
  Receipt Date: 20150128
  Transmission Date: 20150721
  Serious: No
  Sender: FDA-Public Use
  Company Number: None

PATIENT
  Age: 34 Year
  Sex: Female

DRUGS (1)
  1. AVONEX [Suspect]
     Active Substance: INTERFERON BETA-1A
     Dosage: STRENGTH: 30
     Dates: start: 201401

REACTIONS (6)
  - Injection site reaction [None]
  - Vomiting [None]
  - Presyncope [None]
  - Nausea [None]
  - Hyperhidrosis [None]
  - Asthenia [None]

NARRATIVE: CASE EVENT DATE: 20150116
